FAERS Safety Report 4592415-6 (Version None)
Quarter: 2005Q1

REPORT INFORMATION
  Report Type: 
  Country: None (occurrence: None)
  Receive Date: 20050228
  Receipt Date: 20050118
  Transmission Date: 20050727
  Serious: No
  Sender: FDA-Public Use
  Company Number: US-BRISTOL-MYERS SQUIBB COMPANY-12830329

PATIENT
  Age: 62 Year
  Sex: Female
  Weight: 73 kg

DRUGS (4)
  1. ABILIFY [Suspect]
     Indication: DEPRESSION
     Route: 048
  2. ZYPREXA [Concomitant]
  3. NEURONTIN [Concomitant]
  4. WELLBUTRIN [Concomitant]

REACTIONS (2)
  - ABDOMINAL PAIN UPPER [None]
  - CONSTIPATION [None]
